FAERS Safety Report 7653294-3 (Version None)
Quarter: 2011Q3

REPORT INFORMATION
  Report Type: 
  Country: None (occurrence: None)
  Receive Date: 20110803
  Receipt Date: 20110720
  Transmission Date: 20111222
  Serious: Yes (Hospitalization)
  Sender: FDA-Public Use
  Company Number: US-ELI_LILLY_AND_COMPANY-US201107007011

PATIENT
  Sex: Female

DRUGS (21)
  1. SPIRIVA [Concomitant]
     Dosage: UNK, QD
  2. METOPROLOL TARTRATE [Concomitant]
  3. MULTI-VITAMIN [Concomitant]
  4. COQ-10 [Concomitant]
     Dosage: UNK, QD
  5. VICODIN [Concomitant]
  6. NIACIN [Concomitant]
  7. OXYGEN [Concomitant]
     Dosage: UNK, OTHER
  8. HYDRALAZINE HCL [Concomitant]
  9. NEURONTIN [Concomitant]
  10. SYNTHROID [Concomitant]
  11. ASPIRIN [Concomitant]
     Dosage: 81 MG, TID
  12. BETAINE HYDROCHLORIDE [Concomitant]
     Dosage: UNK, QD
  13. DIOVAN [Concomitant]
  14. CALCIUM + VITAMIN D [Concomitant]
     Dosage: 500 MG, UNKNOWN
  15. CELEXA [Concomitant]
     Dosage: 10 MG, QD
  16. DOXYCYCLINE HCL [Concomitant]
  17. FUROSEMIDE [Concomitant]
  18. PLAVIX [Concomitant]
  19. FORTEO [Suspect]
     Indication: OSTEOPOROSIS
     Dosage: 20 UG, QD
     Route: 065
     Dates: start: 20110101
  20. CYANOCOBALAMIN [Concomitant]
  21. OMEPRAZOLE [Concomitant]

REACTIONS (3)
  - FALL [None]
  - BALANCE DISORDER [None]
  - WOUND [None]
